FAERS Safety Report 10965600 (Version 1)
Quarter: 2015Q1

REPORT INFORMATION
  Report Type: Spontaneous
  Country: CN (occurrence: CN)
  Receive Date: 20150330
  Receipt Date: 20150330
  Transmission Date: 20150721
  Serious: Yes (Other)
  Sender: FDA-Public Use
  Company Number: CN-JNJFOC-20150306328

PATIENT
  Age: 27 Year
  Sex: Female

DRUGS (1)
  1. RISPERDAL [Suspect]
     Active Substance: RISPERIDONE
     Indication: SCHIZOPHRENIA
     Dosage: 3 TO 4 MG PER DAY
     Route: 048
     Dates: start: 2006

REACTIONS (3)
  - Gestational hypertension [Unknown]
  - Premature labour [Recovered/Resolved]
  - Exposure via father [Recovered/Resolved]
